FAERS Safety Report 8133758 (Version 3)
Quarter: 2012Q4

REPORT INFORMATION
  Report Type: 
  Country: US (occurrence: US)
  Receive Date: 20110913
  Receipt Date: 20121015
  Transmission Date: 20130627
  Serious: Yes (Death, Hospitalization)
  Sender: FDA-Public Use
  Company Number: US-JNJFOC-20110901868

PATIENT
  Age: 5 None
  Sex: Male

DRUGS (2)
  1. ASPIRIN [Suspect]
     Indication: PYREXIA
     Route: 048
     Dates: start: 19811101, end: 19811101
  2. ASPIRIN [Suspect]
     Indication: TEETHING
     Route: 048
     Dates: start: 19811101, end: 19811101

REACTIONS (3)
  - Reye^s syndrome [Fatal]
  - Sudden infant death syndrome [Fatal]
  - Wrong technique in drug usage process [Unknown]
